FAERS Safety Report 18531892 (Version 1)
Quarter: 2020Q4

REPORT INFORMATION
  Report Type: Other
  Country: FR (occurrence: FR)
  Receive Date: 20201123
  Receipt Date: 20201123
  Transmission Date: 20210114
  Serious: Yes (Hospitalization, Other)
  Sender: FDA-Public Use
  Company Number: FR-DEXPHARM-20200769

PATIENT
  Sex: Male

DRUGS (4)
  1. LAMICTAL [Interacting]
     Active Substance: LAMOTRIGINE
  2. VALPROIC ACID. [Concomitant]
     Active Substance: VALPROIC ACID
  3. KEPPRA [Suspect]
     Active Substance: LEVETIRACETAM
  4. CLONAZEPAM. [Concomitant]
     Active Substance: CLONAZEPAM

REACTIONS (5)
  - Neonatal epileptic seizure [Unknown]
  - Ataxia [Unknown]
  - Overdose [Unknown]
  - Toxicity to various agents [Unknown]
  - Drug interaction [Unknown]
